FAERS Safety Report 8179650-5 (Version None)
Quarter: 2012Q1

REPORT INFORMATION
  Report Type: 
  Country: None (occurrence: None)
  Receive Date: 20120302
  Receipt Date: 20120223
  Transmission Date: 20120608
  Serious: Yes (Hospitalization)
  Sender: FDA-Public Use
  Company Number: US-BAYER-200936817NA

PATIENT
  Age: 46 Year
  Sex: Female
  Weight: 77 kg

DRUGS (13)
  1. DROSPIRENONE AND ETHINYL ESTRADIOL [Suspect]
     Dates: start: 20080701, end: 20090801
  2. LEVOTHYROXINE SODIUM [Concomitant]
     Route: 065
  3. CIPRO [Concomitant]
     Route: 065
  4. TYLENOL-500 [Concomitant]
     Route: 065
  5. WARFARIN SODIUM [Concomitant]
     Route: 065
  6. IRON SULFATETHIAMIN COMPOUND TAB [Concomitant]
     Route: 065
  7. VICODIN [Concomitant]
     Route: 065
  8. YAZ [Suspect]
     Dosage: UNK UNK, UNK
     Route: 048
     Dates: start: 20081001
  9. FLUCONAZOLE [Concomitant]
  10. ALPRAZOLAM [Concomitant]
  11. HYDROCODONE BITARTRATE AND ACETAMINOPHEN [Concomitant]
  12. YASMIN [Suspect]
     Indication: CONTRACEPTION
     Dosage: UNK UNK, UNK
     Route: 048
     Dates: start: 20080701
  13. PEPCID AC [Concomitant]

REACTIONS (9)
  - DYSPNOEA [None]
  - PULMONARY INFARCTION [None]
  - FATIGUE [None]
  - PAIN IN EXTREMITY [None]
  - PYREXIA [None]
  - DEEP VEIN THROMBOSIS [None]
  - THROMBOPHLEBITIS SUPERFICIAL [None]
  - PULMONARY EMBOLISM [None]
  - ARTHRALGIA [None]
